FAERS Safety Report 11875612 (Version 3)
Quarter: 2016Q1

REPORT INFORMATION
  Report Type: Spontaneous
  Country: US (occurrence: US)
  Receive Date: 20151229
  Receipt Date: 20160218
  Transmission Date: 20160526
  Serious: Yes (Other)
  Sender: FDA-Public Use
  Company Number: US-TEVA-621803USA

PATIENT
  Age: 63 Year
  Sex: Female

DRUGS (9)
  1. RITONAVIR. [Interacting]
     Active Substance: RITONAVIR
     Indication: HIV INFECTION
     Route: 065
  2. ESCITALOPRAM [Concomitant]
     Active Substance: ESCITALOPRAM OXALATE
  3. RISPERIDONE. [Suspect]
     Active Substance: RISPERIDONE
     Indication: AGITATION
     Route: 065
  4. EMTRICITABINE [Concomitant]
     Active Substance: EMTRICITABINE
     Indication: HIV INFECTION
  5. AMLODIPINE [Concomitant]
     Active Substance: AMLODIPINE BESYLATE
  6. RISPERIDONE. [Interacting]
     Active Substance: RISPERIDONE
     Indication: AGITATION
     Route: 065
  7. RISPERIDONE. [Interacting]
     Active Substance: RISPERIDONE
     Indication: MANIA
  8. TENOVIR [Concomitant]
     Indication: HIV INFECTION
  9. DARUNAVIR [Concomitant]
     Active Substance: DARUNAVIR
     Indication: HIV INFECTION

REACTIONS (2)
  - Angioedema [Recovered/Resolved]
  - Drug interaction [Unknown]
